FAERS Safety Report 18959425 (Version 2)
Quarter: 2021Q2

REPORT INFORMATION
  Report Type: Spontaneous
  Country: US (occurrence: US)
  Receive Date: 20210302
  Receipt Date: 20210404
  Transmission Date: 20210717
  Serious: No
  Sender: FDA-Public Use
  Company Number: US-TEVA-2021-US-1884766

PATIENT
  Age: 61 Year
  Sex: Male

DRUGS (1)
  1. TESTOSTERONE. [Suspect]
     Active Substance: TESTOSTERONE
     Route: 065
     Dates: start: 202102

REACTIONS (3)
  - Feeling abnormal [Recovered/Resolved]
  - Sneezing [Unknown]
  - Product odour abnormal [Unknown]

NARRATIVE: CASE EVENT DATE: 202102
